FAERS Safety Report 5429138-7 (Version None)
Quarter: 2007Q3

REPORT INFORMATION
  Report Type: 
  Country: None (occurrence: None)
  Receive Date: 20070829
  Receipt Date: 20070815
  Transmission Date: 20080115
  Serious: Yes (Life-Threatening, Disabling)
  Sender: FDA-Public Use
  Company Number: GB-ELI_LILLY_AND_COMPANY-GB200708003901

PATIENT
  Age: 39 Year
  Sex: Female
  Weight: 89 kg

DRUGS (1)
  1. PROZAC [Suspect]
     Dosage: 20 MG, DAILY (1/D)
     Route: 048
     Dates: start: 20070502, end: 20070511

REACTIONS (2)
  - HALLUCINATION [None]
  - SELF-INJURIOUS IDEATION [None]
